FAERS Safety Report 5479116-7 (Version None)
Quarter: 2007Q4

REPORT INFORMATION
  Report Type: 
  Country: None (occurrence: None)
  Receive Date: 20071006
  Receipt Date: 20070927
  Transmission Date: 20080405
  Serious: Yes (Other)
  Sender: FDA-Public Use
  Company Number: US-PFIZER INC-2007081686

PATIENT
  Sex: Female

DRUGS (1)
  1. GEODON [Suspect]

REACTIONS (4)
  - ASTHENIA [None]
  - PARAESTHESIA [None]
  - RESTLESS LEGS SYNDROME [None]
  - TONGUE PARALYSIS [None]
